FAERS Safety Report 6402333-6 (Version None)
Quarter: 2009Q4

REPORT INFORMATION
  Report Type: 
  Country: None (occurrence: None)
  Receive Date: 20091014
  Receipt Date: 20091014
  Transmission Date: 20100525
  Serious: Yes (Other)
  Sender: FDA-Public Use
  Company Number: None

PATIENT
  Age: 61 Year
  Sex: Male
  Weight: 83.4619 kg

DRUGS (2)
  1. MINOCYCLINE HCL [Suspect]
     Indication: ROSACEA
     Dosage: 100 MG. CAP 2X DAILY BY MOUTH
     Route: 048
     Dates: start: 20090911, end: 20090916
  2. MINOCYCLINE HCL [Suspect]
     Indication: SKIN DISORDER
     Dosage: 100 MG. CAP 2X DAILY BY MOUTH
     Route: 048
     Dates: start: 20090911, end: 20090916

REACTIONS (3)
  - EXTRASYSTOLES [None]
  - HEART RATE IRREGULAR [None]
  - INFLUENZA LIKE ILLNESS [None]
